FAERS Safety Report 10171878 (Version 1)
Quarter: 2014Q2

REPORT INFORMATION
  Report Type: Spontaneous
  Country: IN (occurrence: None)
  Receive Date: 20140512
  Receipt Date: 20140512
  Transmission Date: 20141212
  Serious: Yes (Other)
  Sender: FDA-Public Use
  Company Number: INT_00379_2014

PATIENT
  Age: 38 Year
  Sex: Male

DRUGS (3)
  1. CISPLATIN (CISPLATIN) (HQ SPECIALTY) [Suspect]
     Indication: LUNG ADENOCARCINOMA STAGE IV
     Dosage: (65 MG/M2, [ON DAY 1 OF A 3 WEEKLY CYCLE, 4 CYCLES GIVEN])
  2. PEMETREXED [Suspect]
     Indication: LUNG ADENOCARCINOMA STAGE IV
     Dosage: (500 MG/M2, [ON DAY 1 OF A 3 WEEKLY CYCLE, 4 CYCLES GIVEN])
  3. SUPPORTIVE CARE (UNKNOWN) [Concomitant]

REACTIONS (1)
  - Tuberculous pleurisy [None]
